FAERS Safety Report 17119521 (Version 1)
Quarter: 2019Q4

REPORT INFORMATION
  Report Type: Spontaneous
  Country: SE (occurrence: SE)
  Receive Date: 20191206
  Receipt Date: 20191206
  Transmission Date: 20200122
  Serious: Yes (Hospitalization)
  Sender: FDA-Public Use
  Company Number: SE-TEVA-2019-SE-1147138

PATIENT
  Age: 19 Year
  Sex: Male

DRUGS (3)
  1. PROMETHAZINE [Suspect]
     Active Substance: PROMETHAZINE HYDROCHLORIDE
     Route: 048
     Dates: start: 20180316, end: 20180316
  2. VOXRA 150 MG TABLETT MED MODIFIERAD FRIS?TTNING [Suspect]
     Active Substance: BUPROPION HYDROCHLORIDE
     Route: 048
     Dates: start: 20180316, end: 20180316
  3. HYDROXYZINE ORIFARM [HYDROXYZINE HYDROCHLORIDE] [Suspect]
     Active Substance: HYDROXYZINE HYDROCHLORIDE
     Route: 048
     Dates: start: 20180316, end: 20180316

REACTIONS (3)
  - Overdose [Unknown]
  - Confusional state [Unknown]
  - Lethargy [Unknown]

NARRATIVE: CASE EVENT DATE: 20180316
